FAERS Safety Report 13656516 (Version 2)
Quarter: 2017Q3

REPORT INFORMATION
  Report Type: Spontaneous
  Country: JP (occurrence: JP)
  Receive Date: 20170615
  Receipt Date: 20170711
  Transmission Date: 20171127
  Serious: Yes (Hospitalization, Other)
  Sender: FDA-Public Use
  Company Number: JP-BRISTOL-MYERS SQUIBB COMPANY-BMS-2017-052240

PATIENT
  Age: 70 Year
  Sex: Male

DRUGS (15)
  1. METGLUCO [Suspect]
     Active Substance: METFORMIN HYDROCHLORIDE
     Indication: TYPE 2 DIABETES MELLITUS
     Dosage: 500 MG, BID
     Route: 048
     Dates: start: 201304, end: 201501
  2. TRIAZOLAM. [Concomitant]
     Active Substance: TRIAZOLAM
     Indication: SCHIZOPHRENIA
     Dosage: 0.25 MG, UNK
     Route: 048
  3. SHINLUCK [Concomitant]
     Active Substance: SODIUM PICOSULFATE
     Indication: SCHIZOPHRENIA
     Dosage: 10 MG, UNK
     Route: 048
  4. GLIMEPIRIDE. [Concomitant]
     Active Substance: GLIMEPIRIDE
     Indication: PRODUCT USED FOR UNKNOWN INDICATION
     Dosage: 0.5 MG, UNK
     Route: 048
     Dates: start: 20151019
  5. METGLUCO [Suspect]
     Active Substance: METFORMIN HYDROCHLORIDE
     Indication: PRODUCT USED FOR UNKNOWN INDICATION
     Dosage: 500 MG, BID
     Route: 048
     Dates: start: 20150425, end: 20151014
  6. LEVOTOMIN                          /00038602/ [Concomitant]
     Active Substance: LEVOMEPROMAZINE
     Indication: SCHIZOPHRENIA
     Dosage: 50 MG, UNK
     Route: 048
  7. EQUA [Concomitant]
     Active Substance: VILDAGLIPTIN
     Indication: PRODUCT USED FOR UNKNOWN INDICATION
     Dosage: 100 MG, UNK
     Route: 048
     Dates: start: 20151019
  8. RISPERDAL [Concomitant]
     Active Substance: RISPERIDONE
     Indication: SCHIZOPHRENIA
     Dosage: UNK
     Route: 048
  9. GLIMEPIRIDE. [Concomitant]
     Active Substance: GLIMEPIRIDE
     Indication: TYPE 2 DIABETES MELLITUS
     Dosage: 0.5 MG, UNK
     Route: 048
     Dates: start: 20150130, end: 201510
  10. DAIKENCHUTO [Concomitant]
     Active Substance: HERBALS
     Indication: ABDOMINAL ADHESIONS
     Dosage: 5 MG, UNK
     Route: 048
     Dates: start: 20150709, end: 20151205
  11. EURODIN                            /00401202/ [Concomitant]
     Active Substance: DIHYDROERGOCRISTINE MESYLATE
     Indication: SCHIZOPHRENIA
     Dosage: 4 MG, UNK
     Route: 048
  12. PYRETHIA [Concomitant]
     Active Substance: PROMETHAZINE HYDROCHLORIDE
     Indication: SCHIZOPHRENIA
     Dosage: 25 MG, UNK
     Route: 048
  13. MAGMITT [Concomitant]
     Active Substance: MAGNESIUM OXIDE
     Indication: SCHIZOPHRENIA
     Dosage: 1000 MG, UNK
     Route: 048
  14. EQUA [Concomitant]
     Active Substance: VILDAGLIPTIN
     Indication: TYPE 2 DIABETES MELLITUS
     Dosage: 100 MG, UNK
     Route: 048
     Dates: start: 20150130, end: 201510
  15. FERROMIA [Concomitant]
     Active Substance: FERROUS CITRATE
     Indication: HYPOCHROMIC ANAEMIA
     Dosage: 50 MG, UNK
     Route: 048
     Dates: start: 20150807, end: 20151031

REACTIONS (1)
  - Rhabdomyolysis [Recovered/Resolved]

NARRATIVE: CASE EVENT DATE: 20151014
